FAERS Safety Report 7776941-4 (Version None)
Quarter: 2011Q3

REPORT INFORMATION
  Report Type: 
  Country: None (occurrence: None)
  Receive Date: 20110923
  Receipt Date: 20110923
  Transmission Date: 20111222
  Serious: Yes (Hospitalization, Other)
  Sender: FDA-Public Use
  Company Number: None

PATIENT
  Age: 85 Year
  Sex: Male

DRUGS (3)
  1. REVLIMID [Suspect]
     Indication: MULTIPLE MYELOMA
     Dosage: REVLIMID 10 MG DAILY X21D/28D ORALLY
     Route: 048
     Dates: start: 20080201
  2. CHOLECALCIFEROL [Concomitant]
  3. FINASTERIDE [Concomitant]

REACTIONS (3)
  - GRAND MAL CONVULSION [None]
  - LOBAR PNEUMONIA [None]
  - DELIRIUM [None]
